FAERS Safety Report 20608157 (Version 1)
Quarter: 2022Q1

REPORT INFORMATION
  Report Type: Spontaneous
  Country: US (occurrence: None)
  Receive Date: 20220317
  Receipt Date: 20220317
  Transmission Date: 20220423
  Serious: No
  Sender: FDA-Public Use
  Company Number: None

PATIENT
  Sex: Male

DRUGS (2)
  1. EVEROLIMUS [Suspect]
     Active Substance: EVEROLIMUS
     Indication: Renal cancer
     Dosage: FREQUENCY : DAILY;?
     Route: 048
     Dates: start: 20211127
  2. LENVIMA [Concomitant]
     Active Substance: LENVATINIB
     Dates: start: 20211127

REACTIONS (3)
  - Blood test abnormal [None]
  - Pulmonary mass [None]
  - Hypoaesthesia [None]
